FAERS Safety Report 5889069-5 (Version None)
Quarter: 2008Q3

REPORT INFORMATION
  Report Type: 
  Country: None (occurrence: None)
  Receive Date: 20080919
  Receipt Date: 20080505
  Transmission Date: 20090109
  Serious: No
  Sender: FDA-Public Use
  Company Number: US-KINGPHARMUSA00001-K200800525

PATIENT

DRUGS (5)
  1. SONATA [Suspect]
     Indication: INSOMNIA
     Dosage: 10 MG, QHS
     Route: 048
     Dates: start: 20040101
  2. METFORMIN HCL [Concomitant]
     Indication: DIABETES MELLITUS
  3. CHLORZOXAZONE [Concomitant]
     Indication: BACK PAIN
     Dosage: 500 MG, PRN
     Route: 048
     Dates: start: 20080201
  4. ENALAPRIL [Concomitant]
     Indication: HYPERTENSION
  5. BENADRYL [Concomitant]
     Indication: SEASONAL ALLERGY
     Dosage: UNK, PRN

REACTIONS (1)
  - DRUG INEFFECTIVE [None]
